FAERS Safety Report 17943936 (Version 1)
Quarter: 2020Q2

REPORT INFORMATION
  Report Type: Spontaneous
  Country: DK (occurrence: DK)
  Receive Date: 20200625
  Receipt Date: 20200625
  Transmission Date: 20200714
  Serious: Yes (Other)
  Sender: FDA-Public Use
  Company Number: DK-TEVA-2020-DK-1790987

PATIENT
  Age: 24 Year
  Sex: Female
  Weight: 76 kg

DRUGS (4)
  1. DULOXETIN ^KRKA^ [Concomitant]
     Indication: DEPRESSION
     Dosage: STRENGTH: 60MG, UNIT DOSE: 60MG
     Route: 048
     Dates: start: 201908
  2. ESCITALOPRAM ^TEVA^ [Concomitant]
     Active Substance: ESCITALOPRAM OXALATE
     Indication: DEPRESSION
     Dosage: STRENGTH: 5MG ,DOSAGE: AS DIRECTED BY YOUR DOCTOR
     Route: 048
     Dates: start: 201708
  3. LAMOTRIGIN ^TEVA^ [Concomitant]
     Active Substance: LAMOTRIGINE
     Indication: BIPOLAR II DISORDER
     Dosage: STRENGTH: 50 MG AND 200 MG, UNIT DOSE: 250 MG
     Route: 048
     Dates: start: 201805
  4. ARIPIPRAZOLE ^TEVA^ [Suspect]
     Active Substance: ARIPIPRAZOLE
     Indication: BIPOLAR II DISORDER
     Dosage: STRENGTH: 5MG , UNIT DOSE: 2.5 MG
     Route: 048
     Dates: start: 20200528, end: 20200528

REACTIONS (7)
  - Anxiety [Recovered/Resolved]
  - Vision blurred [Not Recovered/Not Resolved]
  - Hallucination, visual [Recovered/Resolved]
  - Hyperacusis [Unknown]
  - Paranoia [Recovered/Resolved]
  - Violence-related symptom [Recovered/Resolved]
  - Derealisation [Not Recovered/Not Resolved]

NARRATIVE: CASE EVENT DATE: 20200528
